FAERS Safety Report 10688690 (Version 1)
Quarter: 2015Q1

REPORT INFORMATION
  Report Type: Report from Study
  Country: US (occurrence: US)
  Receive Date: 20150102
  Receipt Date: 20150102
  Transmission Date: 20150720
  Serious: Yes (Other)
  Sender: FDA-Public Use
  Company Number: US-GLAXOSMITHKLINE-US2014GSK043989

PATIENT
  Age: 42 Year
  Sex: Female

DRUGS (3)
  1. TENOFOVIR [Concomitant]
     Active Substance: TENOFOVIR
     Indication: PRODUCT USED FOR UNKNOWN INDICATION
     Route: 065
  2. ACETAMINOPHEN. [Suspect]
     Active Substance: ACETAMINOPHEN
     Indication: PRODUCT USED FOR UNKNOWN INDICATION
     Route: 065
  3. LAMIVUDINE. [Suspect]
     Active Substance: LAMIVUDINE
     Indication: HEPATITIS B
     Route: 065

REACTIONS (5)
  - Hepatitis B [Unknown]
  - Drug ineffective [Unknown]
  - Toxicity to various agents [Unknown]
  - Acute hepatic failure [Unknown]
  - Hepatitis acute [Unknown]
